FAERS Safety Report 7266183-3 (Version None)
Quarter: 2011Q1

REPORT INFORMATION
  Report Type: 
  Country: None (occurrence: None)
  Receive Date: 20110131
  Receipt Date: 20100917
  Transmission Date: 20110831
  Serious: No
  Sender: FDA-Public Use
  Company Number: US-ABBOTT-10P-163-0672523-00

PATIENT
  Sex: Female

DRUGS (2)
  1. HUMIRA [Concomitant]
     Indication: RHEUMATOID ARTHRITIS
     Dates: start: 20100826
  2. LUPRON DEPOT [Suspect]
     Indication: ENDOMETRIOSIS
     Dates: start: 20100401

REACTIONS (3)
  - MUSCLE SPASMS [None]
  - BACK PAIN [None]
  - PELVIC PAIN [None]
